FAERS Safety Report 9931942 (Version 1)
Quarter: 2014Q1

REPORT INFORMATION
  Report Type: Spontaneous
  Country: US (occurrence: US)
  Receive Date: 20140228
  Receipt Date: 20140228
  Transmission Date: 20141002
  Serious: No
  Sender: FDA-Public Use
  Company Number: US-GLAXOSMITHKLINE-A1048103A

PATIENT
  Age: 75 Year
  Sex: Male
  Weight: 72.4 kg

DRUGS (1)
  1. MELPHALAN [Suspect]
     Indication: PLASMA CELL MYELOMA
     Route: 042
     Dates: start: 20130724, end: 20130724

REACTIONS (1)
  - Febrile neutropenia [Recovered/Resolved]
